FAERS Safety Report 7386987-6 (Version None)
Quarter: 2011Q1

REPORT INFORMATION
  Report Type: 
  Country: None (occurrence: None)
  Receive Date: 20110331
  Receipt Date: 20110323
  Transmission Date: 20110831
  Serious: Yes (Hospitalization)
  Sender: FDA-Public Use
  Company Number: US-GILEAD-2011-0037147

PATIENT
  Sex: Female

DRUGS (7)
  1. TADALAFIL [Concomitant]
  2. METHOCARBAMOL [Concomitant]
  3. CELEBREX [Concomitant]
  4. LETAIRIS [Suspect]
     Indication: PULMONARY HYPERTENSION
     Route: 048
     Dates: start: 20110103, end: 20110222
  5. COUMADIN [Concomitant]
  6. LASIX [Concomitant]
  7. LANOXIN [Concomitant]

REACTIONS (7)
  - ABDOMINAL DISTENSION [None]
  - DYSPNOEA [None]
  - TREMOR [None]
  - TINNITUS [None]
  - HEADACHE [None]
  - OEDEMA PERIPHERAL [None]
  - VOMITING [None]
